FAERS Safety Report 6608688-1 (Version None)
Quarter: 2010Q1

REPORT INFORMATION
  Report Type: 
  Country: None (occurrence: None)
  Receive Date: 20100223
  Receipt Date: 20100211
  Transmission Date: 20100710
  Serious: Yes (Other)
  Sender: FDA-Public Use
  Company Number: 430006J10USA

PATIENT
  Age: 29 Year
  Sex: Female
  Weight: 93 kg

DRUGS (5)
  1. NOVANTRONE [Suspect]
     Indication: MULTIPLE SCLEROSIS
     Dosage: 12 MG/M2, NOT REPORTED, NOT REPORTED 5 MG/M2, NOT REPORTED, NOT REPORTED 8 MG/M2, NOT REPORTED, NOT
     Dates: start: 20050818, end: 20050818
  2. NOVANTRONE [Suspect]
     Indication: MULTIPLE SCLEROSIS
     Dosage: 12 MG/M2, NOT REPORTED, NOT REPORTED 5 MG/M2, NOT REPORTED, NOT REPORTED 8 MG/M2, NOT REPORTED, NOT
     Dates: start: 20051117, end: 20051117
  3. NOVANTRONE [Suspect]
     Indication: MULTIPLE SCLEROSIS
     Dosage: 12 MG/M2, NOT REPORTED, NOT REPORTED 5 MG/M2, NOT REPORTED, NOT REPORTED 8 MG/M2, NOT REPORTED, NOT
     Dates: start: 20060216, end: 20060216
  4. GABAPENTIN [Concomitant]
  5. ORTHO TRI-CYCLEN [Concomitant]

REACTIONS (3)
  - DYSPNOEA [None]
  - EJECTION FRACTION DECREASED [None]
  - FATIGUE [None]
